FAERS Safety Report 16075825 (Version 2)
Quarter: 2020Q1

REPORT INFORMATION
  Report Type: Report from Study
  Country: US (occurrence: US)
  Receive Date: 20190315
  Receipt Date: 20200109
  Transmission Date: 20200409
  Serious: Yes (Death, Hospitalization)
  Sender: FDA-Public Use
  Company Number: US-ROCHE-2277061

PATIENT
  Age: 48 Year
  Sex: Female

DRUGS (4)
  1. HALDOL [Concomitant]
     Active Substance: HALOPERIDOL
  2. ATIVAN [Concomitant]
     Active Substance: LORAZEPAM
  3. OLANZAPINE. [Concomitant]
     Active Substance: OLANZAPINE
  4. PERTUZUMAB. [Suspect]
     Active Substance: PERTUZUMAB
     Indication: BREAST CANCER METASTATIC
     Dosage: 2MCI IN 50MG COLD ANTIBODY
     Route: 042
     Dates: start: 20180906, end: 20180906

REACTIONS (7)
  - Tachypnoea [Unknown]
  - Cardiac arrest [Fatal]
  - Septic shock [Unknown]
  - Oral discharge [Unknown]
  - Hypoxia [Unknown]
  - Multiple organ dysfunction syndrome [Unknown]
  - Disease progression [Fatal]

NARRATIVE: CASE EVENT DATE: 20180921
